FAERS Safety Report 9222795 (Version 6)
Quarter: 2014Q1

REPORT INFORMATION
  Report Type: Report from Study
  Country: BR (occurrence: BR)
  Receive Date: 20130410
  Receipt Date: 20140221
  Transmission Date: 20141002
  Serious: Yes (Hospitalization, Other)
  Sender: FDA-Public Use
  Company Number: BR-ROCHE-1209473

PATIENT
  Age: 66 Year
  Sex: Male
  Weight: 72 kg

DRUGS (13)
  1. XOLAIR [Suspect]
     Indication: BLOOD IMMUNOGLOBULIN E INCREASED
     Route: 058
  2. XOLAIR [Suspect]
     Indication: ASTHMA
     Route: 065
  3. XOLAIR [Suspect]
     Indication: HYPERSENSITIVITY
  4. FORASEQ (BRAZIL) [Suspect]
     Indication: ASTHMA
     Dosage: 12/400; MORNING AND NIGHT
     Route: 048
  5. ACETYLSALICYLIC ACID [Suspect]
     Indication: CARDIAC DISORDER
     Route: 048
     Dates: start: 201301
  6. CLOPIDOGREL [Suspect]
     Indication: CARDIAC DISORDER
     Route: 065
  7. OMEPRAZOLE [Concomitant]
  8. MONOCORDIL [Concomitant]
     Route: 065
     Dates: start: 20130127
  9. ROSUVASTATIN [Concomitant]
     Route: 065
     Dates: start: 201301
  10. ROSUVASTATIN CALCIUM [Concomitant]
     Route: 065
     Dates: start: 201301
  11. PREDNISONE [Concomitant]
     Route: 065
     Dates: start: 201301
  12. AEROLIN [Concomitant]
  13. MONTELAIR [Concomitant]

REACTIONS (24)
  - Infarction [Recovered/Resolved]
  - Hearing impaired [Recovered/Resolved]
  - Asthma [Recovered/Resolved]
  - Yellow skin [Unknown]
  - Cardiac disorder [Not Recovered/Not Resolved]
  - Hypersensitivity [Not Recovered/Not Resolved]
  - Dyspnoea [Recovering/Resolving]
  - Memory impairment [Not Recovered/Not Resolved]
  - Visual acuity reduced [Not Recovered/Not Resolved]
  - Ear disorder [Recovered/Resolved]
  - Weight decreased [Not Recovered/Not Resolved]
  - Ear discomfort [Recovered/Resolved]
  - Diverticulitis [Unknown]
  - Haemorrhage [Unknown]
  - Blood pressure decreased [Recovering/Resolving]
  - Ear infection [Recovering/Resolving]
  - Abasia [Unknown]
  - Lung disorder [Unknown]
  - Head discomfort [Not Recovered/Not Resolved]
  - Multiple allergies [Unknown]
  - Fumbling [Unknown]
  - Apparent death [Recovering/Resolving]
  - Dyspepsia [Recovering/Resolving]
  - Wheezing [Recovering/Resolving]
